FAERS Safety Report 8035561-7 (Version None)
Quarter: 2012Q1

REPORT INFORMATION
  Report Type: 
  Country: None (occurrence: None)
  Receive Date: 20120111
  Receipt Date: 20120105
  Transmission Date: 20120608
  Serious: Yes (Other)
  Sender: FDA-Public Use
  Company Number: US-JNJFOC-20120101787

PATIENT
  Sex: Male
  Weight: 59.6 kg

DRUGS (6)
  1. ASACOL [Concomitant]
     Route: 065
  2. NEXIUM [Concomitant]
     Route: 065
  3. PROBIOTIC [Concomitant]
     Route: 065
  4. REMICADE [Suspect]
     Indication: CROHN'S DISEASE
     Route: 042
     Dates: start: 20111007
  5. ALLEGRA [Concomitant]
     Route: 065
  6. SINGULAIR [Concomitant]
     Route: 065

REACTIONS (3)
  - HENOCH-SCHONLEIN PURPURA [None]
  - DRUG INEFFECTIVE [None]
  - ANAL FISTULA [None]
